FAERS Safety Report 20833792 (Version 2)
Quarter: 2022Q2

REPORT INFORMATION
  Report Type: Spontaneous
  Country: PL (occurrence: PL)
  Receive Date: 20220516
  Receipt Date: 20220527
  Transmission Date: 20220721
  Serious: Yes (Disabling, Other)
  Sender: FDA-Public Use
  Company Number: PL-Zentiva-2022-ZT-003671

PATIENT
  Age: 59 Year
  Sex: Female

DRUGS (3)
  1. PREGABALIN [Suspect]
     Active Substance: PREGABALIN
     Indication: Mental disorder
     Dosage: 225 MG
     Route: 048
  2. PREGABALIN [Suspect]
     Active Substance: PREGABALIN
     Dosage: 150 MG
     Route: 048
  3. PREGABALIN [Suspect]
     Active Substance: PREGABALIN
     Dosage: 2 X 75 MG/24 H
     Route: 048
     Dates: end: 202009

REACTIONS (3)
  - Sedation complication [Recovered/Resolved]
  - Enuresis [Recovered/Resolved]
  - Off label use [Unknown]
